FAERS Safety Report 6566311-9 (Version None)
Quarter: 2010Q1

REPORT INFORMATION
  Report Type: 
  Country: None (occurrence: None)
  Receive Date: 20100202
  Receipt Date: 20100121
  Transmission Date: 20100710
  Serious: Yes (Hospitalization)
  Sender: FDA-Public Use
  Company Number: US-ELI_LILLY_AND_COMPANY-US201001004835

PATIENT
  Sex: Female

DRUGS (2)
  1. FORTEO [Suspect]
     Dosage: 20 UG, UNK
  2. LYRICA [Concomitant]

REACTIONS (3)
  - DRUG DOSE OMISSION [None]
  - OEDEMA PERIPHERAL [None]
  - RENAL DISORDER [None]
